FAERS Safety Report 5290886-3 (Version None)
Quarter: 2007Q2

REPORT INFORMATION
  Report Type: 
  Country: None (occurrence: None)
  Receive Date: 20070409
  Receipt Date: 20070326
  Transmission Date: 20071010
  Serious: Yes (Other)
  Sender: FDA-Public Use
  Company Number: US-PFIZER INC-2007025307

PATIENT
  Sex: Male

DRUGS (4)
  1. LYRICA [Suspect]
     Indication: PAIN
  2. DIGOXIN [Concomitant]
  3. LISINOPRIL W/HYDROCHLOROTHIAZIDE [Concomitant]
  4. ULTRAM [Concomitant]

REACTIONS (1)
  - HEART RATE INCREASED [None]
